FAERS Safety Report 5863398-3 (Version None)
Quarter: 2008Q3

REPORT INFORMATION
  Report Type: 
  Country: None (occurrence: None)
  Receive Date: 20080828
  Receipt Date: 20080820
  Transmission Date: 20090109
  Serious: Yes (Hospitalization)
  Sender: FDA-Public Use
  Company Number: PHEH2008US07004

PATIENT

DRUGS (1)
  1. RECLAST [Suspect]

REACTIONS (2)
  - BLOOD CALCIUM DECREASED [None]
  - PARATHYROID DISORDER [None]
